FAERS Safety Report 19750933 (Version 2)
Quarter: 2023Q2

REPORT INFORMATION
  Report Type: Spontaneous
  Country: JP (occurrence: JP)
  Receive Date: 20210826
  Receipt Date: 20230616
  Transmission Date: 20230721
  Serious: Yes (Other)
  Sender: FDA-Public Use
  Company Number: JP-ONO-2021JP020326

PATIENT
  Age: 71 Year
  Weight: 66 kg

DRUGS (5)
  1. BRAFTOVI [Suspect]
     Active Substance: ENCORAFENIB
     Indication: Colon cancer
     Dosage: 300 MG, 1X/DAY
     Route: 048
     Dates: start: 20210513, end: 20210812
  2. BRAFTOVI [Suspect]
     Active Substance: ENCORAFENIB
     Dosage: 300 MG, EVERYDAY
     Route: 048
     Dates: start: 20210916
  3. MEKTOVI [Suspect]
     Active Substance: BINIMETINIB
     Indication: Colon cancer
     Dosage: 45 MG, 2X/DAY
     Route: 048
     Dates: start: 20210513, end: 20210813
  4. ERBITUX [Concomitant]
     Active Substance: CETUXIMAB
     Indication: Colon cancer
     Dosage: 445 MG
     Route: 041
     Dates: start: 20210513, end: 20210812
  5. ERBITUX [Concomitant]
     Active Substance: CETUXIMAB
     Dosage: 430 MG
     Route: 041
     Dates: start: 20210916

REACTIONS (3)
  - Macular oedema [Recovered/Resolved]
  - Platelet count increased [Unknown]
  - White blood cell count increased [Unknown]

NARRATIVE: CASE EVENT DATE: 20210527
